FAERS Safety Report 8178282-2 (Version None)
Quarter: 2012Q1

REPORT INFORMATION
  Report Type: 
  Country: None (occurrence: None)
  Receive Date: 20120301
  Receipt Date: 20120227
  Transmission Date: 20120608
  Serious: Yes (Hospitalization)
  Sender: FDA-Public Use
  Company Number: VE-ABBOTT-12P-178-0909657-00

PATIENT
  Sex: Female
  Weight: 54 kg

DRUGS (4)
  1. ARAVA [Concomitant]
     Indication: RHEUMATOID ARTHRITIS
  2. CARVEDILOL [Concomitant]
     Indication: HYPERTENSION
  3. VALSARTAN [Concomitant]
     Indication: HYPERTENSION
  4. HUMIRA [Suspect]
     Indication: RHEUMATOID ARTHRITIS
     Route: 058
     Dates: start: 20091201, end: 20120207

REACTIONS (1)
  - THROMBOPHLEBITIS [None]
